FAERS Safety Report 23673479 (Version 1)
Quarter: 2024Q1

REPORT INFORMATION
  Report Type: Spontaneous
  Country: US (occurrence: US)
  Receive Date: 20240326
  Receipt Date: 20240326
  Transmission Date: 20240409
  Serious: No
  Sender: FDA-Public Use
  Company Number: US-PFIZER INC-202400065013

PATIENT
  Age: 18 Year
  Sex: Female
  Weight: 49.9 kg

DRUGS (1)
  1. GENOTROPIN [Suspect]
     Active Substance: SOMATROPIN
     Indication: Growth hormone deficiency
     Dosage: 12MG/ML, INJECTS 0.5MG UNDER SKIN DAILY
     Route: 058

REACTIONS (3)
  - Drug dose omission by device [Not Recovered/Not Resolved]
  - Device issue [Unknown]
  - Product prescribing error [Unknown]
